FAERS Safety Report 13234241 (Version 1)
Quarter: 2017Q1

REPORT INFORMATION
  Report Type: Spontaneous
  Country: US (occurrence: US)
  Receive Date: 20170215
  Receipt Date: 20170215
  Transmission Date: 20170428
  Serious: No
  Sender: FDA-Public Use
  Company Number: US-CIPLA LTD.-2016US17941

PATIENT

DRUGS (2)
  1. GABAPENTIN. [Suspect]
     Active Substance: GABAPENTIN
     Dosage: UNK
     Route: 065
     Dates: start: 2016
  2. MICARDIS [Suspect]
     Active Substance: TELMISARTAN
     Indication: CARDIAC DISORDER
     Dosage: 40 MG, UNK
     Route: 065

REACTIONS (3)
  - Dysstasia [Unknown]
  - Drug intolerance [Unknown]
  - Feeling drunk [Unknown]
